FAERS Safety Report 13587429 (Version 1)
Quarter: 2017Q2

REPORT INFORMATION
  Report Type: Spontaneous
  Country: MT (occurrence: MT)
  Receive Date: 20170526
  Receipt Date: 20170526
  Transmission Date: 20170830
  Serious: Yes (Other)
  Sender: FDA-Public Use
  Company Number: MT-GILEAD-2017-0269650

PATIENT
  Age: 60 Year
  Sex: Male
  Weight: 76 kg

DRUGS (6)
  1. AMARYL [Concomitant]
     Active Substance: GLIMEPIRIDE
  2. SOVALDI [Suspect]
     Active Substance: SOFOSBUVIR
     Indication: CHRONIC HEPATITIS C
     Dosage: 400 MG, UNK
     Route: 048
     Dates: start: 20161117, end: 20170427
  3. DACLATASVIR. [Concomitant]
     Active Substance: DACLATASVIR
  4. TENOFOVIR [Concomitant]
     Active Substance: TENOFOVIR
  5. RIBAVIRIN. [Concomitant]
     Active Substance: RIBAVIRIN
  6. OMEPRAZOLE. [Concomitant]
     Active Substance: OMEPRAZOLE

REACTIONS (2)
  - Oesophageal varices haemorrhage [Unknown]
  - Hepatic encephalopathy [Unknown]

NARRATIVE: CASE EVENT DATE: 201702
